FAERS Safety Report 6199023-4 (Version None)
Quarter: 2009Q2

REPORT INFORMATION
  Report Type: 
  Country: None (occurrence: None)
  Receive Date: 20090520
  Receipt Date: 20090520
  Transmission Date: 20091009
  Serious: No
  Sender: FDA-Public Use
  Company Number: None

PATIENT
  Age: 28 Year
  Sex: Female
  Weight: 97.5234 kg

DRUGS (1)
  1. TOPIRAMATE [Suspect]
     Indication: MIGRAINE PROPHYLAXIS
     Dosage: 2 PILLS ONCE A DAY PO
     Route: 048
     Dates: start: 20090415, end: 20090516

REACTIONS (5)
  - DRUG INEFFECTIVE [None]
  - FACIAL PALSY [None]
  - HEADACHE [None]
  - PRODUCT SUBSTITUTION ISSUE [None]
  - VISUAL IMPAIRMENT [None]
